FAERS Safety Report 8911425 (Version 2)
Quarter: 2012Q4

REPORT INFORMATION
  Report Type: 
  Country: US (occurrence: US)
  Receive Date: 20121115
  Receipt Date: 20121204
  Transmission Date: 20130627
  Serious: No
  Sender: FDA-Public Use
  Company Number: US-TEVA-370249USA

PATIENT
  Age: 27 Year
  Sex: Female
  Weight: 43.13 kg

DRUGS (2)
  1. PLAN B ONE-STEP [Suspect]
     Indication: POST COITAL CONTRACEPTION
     Dosage: 1.5 Milligram Daily;
     Route: 048
     Dates: start: 20121101, end: 20121101
  2. NEXT CHOICE [Suspect]
     Indication: POST COITAL CONTRACEPTION
     Dates: start: 20121102, end: 201211

REACTIONS (2)
  - Breast enlargement [Recovered/Resolved]
  - Breast pain [Recovered/Resolved]
